FAERS Safety Report 15021026 (Version 1)
Quarter: 2018Q2

REPORT INFORMATION
  Report Type: Spontaneous
  Country: US (occurrence: US)
  Receive Date: 20180601
  Receipt Date: 20180601
  Transmission Date: 20180711
  Serious: Yes (Life-Threatening, Other)
  Sender: FDA-Public Use
  Company Number: None

PATIENT
  Age: 68 Year
  Sex: Female
  Weight: 69.75 kg

DRUGS (10)
  1. KLOR-CON SPRINKLE [Concomitant]
     Active Substance: POTASSIUM CHLORIDE
  2. CARVEDILOL. [Concomitant]
     Active Substance: CARVEDILOL
  3. MYCOPHENOLATE [Concomitant]
     Active Substance: MYCOPHENOLIC ACID
  4. CALCITROL [Concomitant]
     Active Substance: CALCITRIOL
  5. CLONIDINE. [Concomitant]
     Active Substance: CLONIDINE
  6. AMLODIPINE [Concomitant]
     Active Substance: AMLODIPINE BESYLATE
  7. HYDROXYCHLOROQUINE [Concomitant]
     Active Substance: HYDROXYCHLOROQUINE
  8. DIALYVITE [Concomitant]
     Active Substance: ASCORBIC ACID\BIOTIN\CALCIUM PANTOTHENATE\COBALAMIN\FOLIC ACID\NIACINAMIDE\PYRIDOXINE HYDROCHLORIDE\RIBOFLAVIN\THIAMINE MONONITRATE
  9. EPOGEN [Suspect]
     Active Substance: ERYTHROPOIETIN
     Indication: DIALYSIS
     Dosage: ?          QUANTITY:2 DF DOSAGE FORM;OTHER ROUTE:INJECTION?
  10. SYMBICORT [Concomitant]
     Active Substance: BUDESONIDE\FORMOTEROL FUMARATE DIHYDRATE

REACTIONS (3)
  - Nausea [None]
  - Refusal of treatment by patient [None]
  - Lung neoplasm malignant [None]

NARRATIVE: CASE EVENT DATE: 20180308
